FAERS Safety Report 9705477 (Version 1)
Quarter: 2013Q4

REPORT INFORMATION
  Report Type: Spontaneous
  Country: GB (occurrence: GB)
  Receive Date: 20131122
  Receipt Date: 20131122
  Transmission Date: 20140711
  Serious: Yes (Hospitalization)
  Sender: FDA-Public Use
  Company Number: GB-WATSON-2013-21410

PATIENT
  Age: 71 Year
  Sex: Female

DRUGS (8)
  1. CITALOPRAM (UNKNOWN) [Suspect]
     Indication: DEPRESSION
     Dosage: 20 MG, DAILY
     Route: 048
     Dates: start: 20131004, end: 20131030
  2. OMEPRAZOLE (UNKNOWN) [Suspect]
     Indication: PRODUCT USED FOR UNKNOWN INDICATION
     Dosage: 20 MG, DAILY; RECENTLY STARTED, DATE UNKNOWN
     Route: 048
  3. ENALAPRIL (UNKNOWN) [Suspect]
     Indication: PRODUCT USED FOR UNKNOWN INDICATION
     Dosage: UNK
     Route: 065
  4. BENDROFLUMETHIAZIDE (UNKNOWN) [Suspect]
     Indication: PRODUCT USED FOR UNKNOWN INDICATION
     Dosage: UNK
     Route: 065
  5. LANSOPRAZOLE [Concomitant]
     Indication: PRODUCT USED FOR UNKNOWN INDICATION
     Dosage: UNK; RECENTLY DISCONTINUED AND SWITCHED TO OMEPRAZOLE.
     Route: 065
  6. DOMPERIDONE [Concomitant]
     Indication: ABDOMINAL DISTENSION
     Dosage: WHEN NECESSARY.?RECENTLY STARTED WITH OMEPRAZOLE FOR BLOATING.
     Route: 048
  7. LEVOTHYROXINE [Concomitant]
     Indication: PRODUCT USED FOR UNKNOWN INDICATION
     Dosage: 100 ?G, DAILY; LONGSTANDING TREATMENT
     Route: 048
  8. ORAMORPH [Concomitant]
     Indication: PRODUCT USED FOR UNKNOWN INDICATION
     Dosage: 5 MG, AS NECESSARY
     Route: 048

REACTIONS (4)
  - Hallucination [Unknown]
  - Hyponatraemia [Recovering/Resolving]
  - Diarrhoea [Unknown]
  - Hypokalaemia [Unknown]
